FAERS Safety Report 8109252-8 (Version None)
Quarter: 2012Q1

REPORT INFORMATION
  Report Type: 
  Country: None (occurrence: None)
  Receive Date: 20120202
  Receipt Date: 20120124
  Transmission Date: 20120608
  Serious: Yes (Death)
  Sender: FDA-Public Use
  Company Number: IE-MEDIMMUNE-MEDI-0014565

PATIENT
  Sex: Female

DRUGS (3)
  1. TOPIRAMATE [Concomitant]
  2. LEVETIRACETAM [Concomitant]
  3. SYNAGIS [Suspect]
     Indication: HEART DISEASE CONGENITAL
     Route: 030
     Dates: start: 20110118, end: 20110118

REACTIONS (1)
  - DEATH [None]
